FAERS Safety Report 8471733-5 (Version None)
Quarter: 2012Q2

REPORT INFORMATION
  Report Type: 
  Country: None (occurrence: None)
  Receive Date: 20120627
  Receipt Date: 20120621
  Transmission Date: 20120825
  Serious: Yes (Hospitalization, Disabling)
  Sender: FDA-Public Use
  Company Number: GB-VIIV HEALTHCARE LIMITED-B0810954A

PATIENT
  Age: 20 Year
  Sex: Male
  Weight: 73 kg

DRUGS (8)
  1. ZIDOVUDINE [Suspect]
     Indication: HIV INFECTION
     Dosage: 250MG TWICE PER DAY
     Route: 048
     Dates: start: 20120314, end: 20120406
  2. CIDOFOVIR [Suspect]
     Indication: PROGRESSIVE MULTIFOCAL LEUKOENCEPHALOPATHY
     Dosage: 370MG WEEKLY
     Route: 042
     Dates: start: 20120328, end: 20120423
  3. CIDOFOVIR [Suspect]
     Indication: JC VIRUS INFECTION
     Route: 065
  4. SAQUINAVIR [Concomitant]
     Indication: HIV INFECTION
     Dosage: 1G TWICE PER DAY
     Route: 048
     Dates: start: 20120406
  5. KALETRA [Suspect]
     Indication: HIV INFECTION
     Route: 048
     Dates: start: 20120314
  6. PROBENECID [Concomitant]
     Indication: PRODUCT USED FOR UNKNOWN INDICATION
     Route: 048
     Dates: start: 20120328, end: 20120423
  7. MIRTAZAPINE [Concomitant]
     Indication: JC VIRUS INFECTION
     Dosage: 15MG PER DAY
     Route: 048
     Dates: start: 20120410
  8. TENOFOVIR DISOPROXIL FUMARATE [Concomitant]
     Indication: HIV INFECTION
     Dosage: 245MG PER DAY
     Route: 048
     Dates: start: 20120314

REACTIONS (2)
  - ILL-DEFINED DISORDER [None]
  - NEUTROPENIA [None]
